FAERS Safety Report 23368679 (Version 1)
Quarter: 2024Q1

REPORT INFORMATION
  Report Type: Spontaneous
  Country: DE (occurrence: DE)
  Receive Date: 20240105
  Receipt Date: 20240105
  Transmission Date: 20240410
  Serious: Yes (Other)
  Sender: FDA-Public Use
  Company Number: DE-CADRBFARM-2023324940

PATIENT
  Age: 34 Year
  Sex: Female
  Weight: 92 kg

DRUGS (2)
  1. CETIRIZINE [Suspect]
     Active Substance: CETIRIZINE HYDROCHLORIDE
     Indication: Product used for unknown indication
     Dosage: UNK
     Route: 065
  2. AUBAGIO [Suspect]
     Active Substance: TERIFLUNOMIDE
     Indication: Multiple sclerosis
     Dosage: 1 DOSAGE FORM, ONCE A DAY (1 PILL PER DAY)
     Route: 048
     Dates: start: 20221210, end: 20231031

REACTIONS (4)
  - Diarrhoea [Recovered/Resolved]
  - Impaired quality of life [Recovered/Resolved]
  - Abdominal distension [Unknown]
  - Adverse reaction [Unknown]

NARRATIVE: CASE EVENT DATE: 20230305
